FAERS Safety Report 7208971-5 (Version None)
Quarter: 2011Q1

REPORT INFORMATION
  Report Type: 
  Country: None (occurrence: None)
  Receive Date: 20110104
  Receipt Date: 20101230
  Transmission Date: 20110831
  Serious: Yes (Death, Hospitalization, Other)
  Sender: FDA-Public Use
  Company Number: PHEH2009US18722

PATIENT
  Sex: Female
  Weight: 109.1 kg

DRUGS (42)
  1. LIDOCAINE HYDROCHLORIDE IN PLASTIC CONTAINER [Concomitant]
  2. AMITIZA [Concomitant]
  3. TOPAMAX [Concomitant]
  4. XANAX [Concomitant]
  5. FLUOXETINE [Concomitant]
  6. CLONAZEPAM [Concomitant]
  7. ALPRAZOLAM [Concomitant]
  8. NORCO [Concomitant]
  9. ELAVIL [Concomitant]
  10. OMEPRAZOLE [Concomitant]
  11. AMITRIPTYLINE [Concomitant]
  12. CALCIUM [Concomitant]
  13. FLAXSEED OIL [Concomitant]
  14. NYSTATIN [Concomitant]
  15. DYAZIDE [Concomitant]
  16. TIGAN [Concomitant]
  17. GLEEVEC [Suspect]
     Dosage: 400 MG, QD
     Route: 048
  18. GLEEVEC [Suspect]
     Dosage: 400 MG, UNK
     Route: 048
  19. ASPIRIN [Concomitant]
  20. PROZAC [Concomitant]
  21. GLEEVEC [Suspect]
     Indication: CHRONIC MYELOID LEUKAEMIA
     Dosage: 400 MG DAILY
     Route: 048
     Dates: start: 20091007
  22. GLEEVEC [Suspect]
     Dosage: 400 MG, DAILY
     Route: 048
     Dates: start: 20091008
  23. FORTICAL /KOR/ [Concomitant]
  24. ZANTAC [Concomitant]
  25. PERCOCET [Concomitant]
  26. ASPIRIN [Concomitant]
  27. VITAMIN D [Concomitant]
  28. PRILOSEC [Concomitant]
  29. KLONOPIN [Concomitant]
  30. LYRICA [Concomitant]
  31. TOPIRAMATE [Concomitant]
  32. RANITIDINE [Concomitant]
  33. CHANTIX [Concomitant]
  34. ZINC [Concomitant]
  35. BACLOFEN [Concomitant]
  36. NASACORT AQ [Concomitant]
  37. PREMARIN [Concomitant]
  38. PROMETHAZINE [Concomitant]
  39. WELLBUTRIN [Concomitant]
  40. FORTICAL [Concomitant]
  41. BUPROPION [Concomitant]
  42. FUROSEMIDE [Concomitant]

REACTIONS (16)
  - SWELLING [None]
  - ASTHENIA [None]
  - MUSCLE TWITCHING [None]
  - DEATH [None]
  - NAUSEA [None]
  - OEDEMA [None]
  - CONFUSIONAL STATE [None]
  - FEELING COLD [None]
  - FLUID RETENTION [None]
  - DIARRHOEA [None]
  - DEHYDRATION [None]
  - WEIGHT INCREASED [None]
  - VOMITING [None]
  - MUSCLE SPASMS [None]
  - MYALGIA [None]
  - FATIGUE [None]
